FAERS Safety Report 20171642 (Version 1)
Quarter: 2021Q4

REPORT INFORMATION
  Report Type: Report from Study
  Country: CN (occurrence: CN)
  Receive Date: 20211210
  Receipt Date: 20211210
  Transmission Date: 20220303
  Serious: Yes (Death, Other)
  Sender: FDA-Public Use
  Company Number: CN-JNJFOC-20211203171

PATIENT

DRUGS (3)
  1. REMICADE [Suspect]
     Active Substance: INFLIXIMAB
     Indication: Rheumatoid arthritis
     Dosage: AT WEEK 0,2,6,14,22
     Route: 042
  2. METHOTREXATE [Suspect]
     Active Substance: METHOTREXATE
     Indication: Rheumatoid arthritis
     Dosage: 1025 MG/WEEK
     Route: 048
  3. FOLIC ACID [Suspect]
     Active Substance: FOLIC ACID
     Indication: Product used for unknown indication
     Dosage: 510 MG/WEEK
     Route: 065

REACTIONS (19)
  - Completed suicide [Fatal]
  - Lupus-like syndrome [Unknown]
  - Pneumonia [Unknown]
  - Lymph node tuberculosis [Unknown]
  - Tuberculosis [Unknown]
  - Interstitial lung disease [Unknown]
  - Haemophagocytic lymphohistiocytosis [Unknown]
  - Sinus bradycardia [Unknown]
  - Gastroenteritis [Unknown]
  - Upper respiratory tract infection [Unknown]
  - Pyrexia [Unknown]
  - Anaemia [Unknown]
  - Infusion related reaction [Unknown]
  - Polyserositis [Unknown]
  - Pneumonitis [Unknown]
  - Erythema nodosum [Unknown]
  - Cough [Unknown]
  - Productive cough [Unknown]
  - Drug specific antibody present [Unknown]
